FAERS Safety Report 5463964-3 (Version None)
Quarter: 2007Q3

REPORT INFORMATION
  Report Type: 
  Country: None (occurrence: None)
  Receive Date: 20070921
  Receipt Date: 20070914
  Transmission Date: 20080115
  Serious: Yes (Other)
  Sender: FDA-Public Use
  Company Number: PHEH2007US12432

PATIENT
  Sex: Female

DRUGS (2)
  1. ZOMETA [Suspect]
     Dosage: 4 MG, UNK
     Dates: start: 20070813, end: 20070813
  2. TARCEVA [Concomitant]

REACTIONS (2)
  - BONE SCAN ABNORMAL [None]
  - PAIN IN JAW [None]
